FAERS Safety Report 8066121-X (Version None)
Quarter: 2012Q1

REPORT INFORMATION
  Report Type: 
  Country: None (occurrence: None)
  Receive Date: 20120124
  Receipt Date: 20120115
  Transmission Date: 20120608
  Serious: Yes (Life-Threatening, Other)
  Sender: FDA-Public Use
  Company Number: DK-JNJFOC-20120108915

PATIENT
  Age: 65 Year
  Sex: Male

DRUGS (3)
  1. ALCOHOL [Concomitant]
     Indication: PRODUCT USED FOR UNKNOWN INDICATION
     Route: 065
  2. TEMGESIC [Concomitant]
     Indication: BACK PAIN
     Route: 065
     Dates: end: 20120103
  3. TAPENTADOL HYDROCHLORIDE [Suspect]
     Indication: BACK PAIN
     Route: 048
     Dates: start: 20120103

REACTIONS (3)
  - DRUG INEFFECTIVE [None]
  - SUICIDE ATTEMPT [None]
  - INTENTIONAL OVERDOSE [None]
